FAERS Safety Report 16046354 (Version 2)
Quarter: 2019Q2

REPORT INFORMATION
  Report Type: Spontaneous
  Country: DE (occurrence: DE)
  Receive Date: 20190307
  Receipt Date: 20190621
  Transmission Date: 20190711
  Serious: Yes (Other)
  Sender: FDA-Public Use
  Company Number: DE-ASTRAZENECA-2019SE36475

PATIENT
  Sex: Female

DRUGS (1)
  1. BYDUREON [Suspect]
     Active Substance: EXENATIDE
     Indication: TYPE 2 DIABETES MELLITUS
     Route: 065
     Dates: end: 20190313

REACTIONS (11)
  - Cystitis [Unknown]
  - Diabetes mellitus [Unknown]
  - Dizziness [Unknown]
  - Polyneuropathy [Unknown]
  - Fatigue [Unknown]
  - Asthenia [Unknown]
  - Memory impairment [Unknown]
  - Constipation [Unknown]
  - Needle issue [Unknown]
  - Sensitive skin [Unknown]
  - Headache [Unknown]
